FAERS Safety Report 23818118 (Version 2)
Quarter: 2024Q2

REPORT INFORMATION
  Report Type: Report from Study
  Country: US (occurrence: US)
  Receive Date: 20240506
  Receipt Date: 20240513
  Transmission Date: 20240716
  Serious: Yes (Hospitalization)
  Sender: FDA-Public Use
  Company Number: US-UCBSA-2023003597

PATIENT
  Age: 69 Year
  Sex: Female

DRUGS (9)
  1. BRIVARACETAM [Suspect]
     Active Substance: BRIVARACETAM
     Indication: Seizure
     Dosage: 100 MILLIGRAM,1 TAB 2X/DAY (BID)
     Route: 048
     Dates: start: 202012
  2. BRIVARACETAM [Suspect]
     Active Substance: BRIVARACETAM
     Dosage: 50 MILLIGRAM, 2X/DAY (BID)
     Route: 048
     Dates: start: 202101
  3. BRIVARACETAM [Suspect]
     Active Substance: BRIVARACETAM
     Dosage: 50MG 1 TAB IN AM AND 100MG 1 TAB PO HS
     Route: 048
     Dates: start: 202105
  4. BRIVARACETAM [Suspect]
     Active Substance: BRIVARACETAM
     Dosage: 125MG 1 TAB AM AND 100MG 1 TAB HS
     Route: 048
     Dates: start: 202108
  5. BRIVARACETAM [Suspect]
     Active Substance: BRIVARACETAM
     Dosage: 125 MILLIGRAM, 1 TAB 2X/DAY (BID)
     Route: 048
     Dates: start: 20220128
  6. BRIVARACETAM [Suspect]
     Active Substance: BRIVARACETAM
     Dosage: 100 MILLIGRAM ONE TABLET,25 MILLIGRAM, ONE TABLET BID
     Route: 048
     Dates: start: 20230112
  7. VIMPAT [Concomitant]
     Active Substance: LACOSAMIDE
     Indication: Product used for unknown indication
     Dosage: 200 MILLIGRAM, AND 50 MILLIGRAM 1 TAB OF EACH BID
     Route: 048
     Dates: start: 20220908
  8. PENICILLIN G POTASSIUM [Concomitant]
     Active Substance: PENICILLIN G POTASSIUM
     Indication: Product used for unknown indication
     Dosage: UNK
  9. TRILEPTAL [Concomitant]
     Active Substance: OXCARBAZEPINE
     Indication: Product used for unknown indication
     Dosage: UNK

REACTIONS (5)
  - General physical health deterioration [Unknown]
  - Overdose [Unknown]
  - Product use issue [Unknown]
  - Product distribution issue [Unknown]
  - Therapy interrupted [Unknown]

NARRATIVE: CASE EVENT DATE: 20210501
